FAERS Safety Report 9272324 (Version 1)
Quarter: 2013Q2

REPORT INFORMATION
  Report Type: Spontaneous
  Country: US (occurrence: US)
  Receive Date: 20130506
  Receipt Date: 20130506
  Transmission Date: 20140414
  Serious: No
  Sender: FDA-Public Use
  Company Number: US-ASTRAZENECA-2012SE90395

PATIENT
  Sex: Female

DRUGS (6)
  1. PRILOSEC OTC [Suspect]
     Indication: OCCULT BLOOD POSITIVE
     Route: 048
     Dates: start: 20121103
  2. DIGOXIN [Concomitant]
     Indication: ARRHYTHMIA
  3. MAXALT [Concomitant]
  4. ESGIC-PLUS [Concomitant]
  5. INDERAL [Concomitant]
     Indication: HEADACHE
  6. TRAZODONE [Concomitant]

REACTIONS (2)
  - Labelled drug-drug interaction medication error [Unknown]
  - Headache [Recovered/Resolved]
